FAERS Safety Report 17110525 (Version 1)
Quarter: 2019Q4

REPORT INFORMATION
  Report Type: Spontaneous
  Country: US (occurrence: US)
  Receive Date: 20191108
  Receipt Date: 20191108
  Transmission Date: 20200122
  Serious: Yes (Life-Threatening, Hospitalization)
  Sender: FDA-Public Use
  Company Number: None

PATIENT
  Age: 51 Year
  Sex: Male
  Weight: 90 kg

DRUGS (2)
  1. CEFAZOLIN [Suspect]
     Active Substance: CEFAZOLIN
     Indication: ANTIBIOTIC PROPHYLAXIS
     Dates: start: 20191023, end: 20191023
  2. KETOROLAC TROMETHAMINE. [Suspect]
     Active Substance: KETOROLAC TROMETHAMINE
     Indication: PAIN
     Dates: start: 20191023, end: 20191023

REACTIONS (4)
  - Anaphylactic reaction [None]
  - Pulmonary oedema [None]
  - Procedural hypotension [None]
  - Cardiomegaly [None]

NARRATIVE: CASE EVENT DATE: 20191023
